FAERS Safety Report 16939875 (Version 1)
Quarter: 2019Q4

REPORT INFORMATION
  Report Type: Spontaneous
  Country: US (occurrence: US)
  Receive Date: 20191021
  Receipt Date: 20191021
  Transmission Date: 20200122
  Serious: Yes (Hospitalization)
  Sender: FDA-Public Use
  Company Number: US-STRIDES ARCOLAB LIMITED-2019SP010181

PATIENT
  Age: 72 Year
  Sex: Female

DRUGS (1)
  1. AMLODIPINE [Suspect]
     Active Substance: AMLODIPINE BESYLATE
     Indication: PRODUCT USED FOR UNKNOWN INDICATION
     Dosage: 100 TABLETS 5MG, 500 MILLIGRAM, TOTAL
     Route: 048

REACTIONS (9)
  - Dizziness [Unknown]
  - Intentional overdose [Unknown]
  - Blood sodium abnormal [Unknown]
  - Alanine aminotransferase abnormal [Unknown]
  - Toxicity to various agents [Unknown]
  - Suicide attempt [Unknown]
  - Hypotension [Recovered/Resolved]
  - Lethargy [Unknown]
  - Aspartate aminotransferase abnormal [Unknown]
